FAERS Safety Report 6673338-5 (Version None)
Quarter: 2010Q2

REPORT INFORMATION
  Report Type: 
  Country: None (occurrence: None)
  Receive Date: 20100408
  Receipt Date: 20100331
  Transmission Date: 20101027
  Serious: Yes (Other)
  Sender: FDA-Public Use
  Company Number: US-WATSON-2010-04393

PATIENT
  Age: 19 Month
  Sex: Female

DRUGS (1)
  1. CYCLOBENZAPRINE HYDROCHLORIDE [Suspect]
     Indication: ACCIDENTAL EXPOSURE
     Dosage: UNK

REACTIONS (11)
  - ACUTE DISSEMINATED ENCEPHALOMYELITIS [None]
  - CONSTIPATION [None]
  - DRUG TOXICITY [None]
  - GAIT DISTURBANCE [None]
  - IRRITABILITY [None]
  - NYSTAGMUS [None]
  - RESTLESSNESS [None]
  - SLEEP DISORDER [None]
  - SOMNOLENCE [None]
  - UPPER RESPIRATORY TRACT CONGESTION [None]
  - VOMITING [None]
